FAERS Safety Report 18700899 (Version 1)
Quarter: 2021Q1

REPORT INFORMATION
  Report Type: Spontaneous
  Country: DE (occurrence: DE)
  Receive Date: 20210105
  Receipt Date: 20210105
  Transmission Date: 20210419
  Serious: Yes (Congenital Anomaly)
  Sender: FDA-Public Use
  Company Number: NVSC2020DE344126

PATIENT
  Age: 1 Year
  Sex: Male
  Weight: .56 kg

DRUGS (2)
  1. FOLIC ACID. [Concomitant]
     Active Substance: FOLIC ACID
     Indication: FOETAL EXPOSURE DURING PREGNANCY
     Dosage: UNK (MOTHER DOSE: 0.4 MG QD)
     Route: 064
     Dates: start: 20190410, end: 20190921
  2. COLESTYRAMINE [Suspect]
     Active Substance: CHOLESTYRAMINE
     Indication: FOETAL EXPOSURE DURING PREGNANCY
     Dosage: UNK (MOTHER DOSE: 4000 MG QD)
     Route: 064
     Dates: start: 20190410, end: 20190921

REACTIONS (4)
  - Brachycephaly [Not Recovered/Not Resolved]
  - Foetal exposure during pregnancy [Unknown]
  - Spina bifida [Not Recovered/Not Resolved]
  - Cerebral ventricle dilatation [Not Recovered/Not Resolved]
